FAERS Safety Report 4926981-5 (Version None)
Quarter: 2006Q1

REPORT INFORMATION
  Report Type: 
  Country: None (occurrence: None)
  Receive Date: 20060228
  Receipt Date: 20050927
  Transmission Date: 20060701
  Serious: No
  Sender: FDA-Public Use
  Company Number: US-GLAXOSMITHKLINE-A0576072A

PATIENT
  Age: 11 Year
  Sex: Male

DRUGS (3)
  1. LAMICTAL [Suspect]
     Indication: BIPOLAR DISORDER
     Dosage: 250MG IN THE MORNING
     Route: 048
     Dates: start: 20050804
  2. RISPERDAL [Concomitant]
     Dosage: 1MG TWICE PER DAY
     Route: 048
  3. ZOLOFT [Concomitant]
     Dosage: 100MG PER DAY
     Route: 048

REACTIONS (1)
  - URINARY INCONTINENCE [None]
